FAERS Safety Report 23082582 (Version 2)
Quarter: 2024Q2

REPORT INFORMATION
  Report Type: Spontaneous
  Country: HR (occurrence: HR)
  Receive Date: 20231019
  Receipt Date: 20240621
  Transmission Date: 20240716
  Serious: Yes (Other)
  Sender: FDA-Public Use
  Company Number: HR-ABBVIE-5455197

PATIENT
  Age: 77 Year
  Sex: Male

DRUGS (6)
  1. VENETOCLAX [Suspect]
     Active Substance: VENETOCLAX
     Indication: Chronic lymphocytic leukaemia
     Dosage: 400 MILLIGRAM
     Route: 048
     Dates: start: 20220412, end: 20220712
  2. VENETOCLAX [Suspect]
     Active Substance: VENETOCLAX
     Indication: Chronic lymphocytic leukaemia
     Dosage: 400 MILLIGRAM
     Route: 048
     Dates: start: 20220119, end: 20220405
  3. VENETOCLAX [Suspect]
     Active Substance: VENETOCLAX
     Indication: Chronic lymphocytic leukaemia
     Dosage: 300 MILLIGRAM
     Route: 048
     Dates: start: 20220726, end: 20230222
  4. VENETOCLAX [Suspect]
     Active Substance: VENETOCLAX
     Indication: Chronic lymphocytic leukaemia
     Dosage: 200 MILLIGRAM
     Route: 048
     Dates: start: 20230227, end: 20230306
  5. OBINUTUZUMAB [Suspect]
     Active Substance: OBINUTUZUMAB
     Indication: Product used for unknown indication
     Dosage: FREQUENCY TEXT: IN MAY 2022 APPLICATION DELAYED FOR 1 WEEK?LAST ADMIN DATE: 2022
     Route: 065
     Dates: start: 20220119
  6. OBINUTUZUMAB [Suspect]
     Active Substance: OBINUTUZUMAB
     Indication: Product used for unknown indication
     Dosage: START DATE 2022
     Route: 065

REACTIONS (6)
  - Respiratory tract infection [Recovered/Resolved]
  - Neutropenia [Unknown]
  - Reticulocytopenia [Unknown]
  - Anaemia folate deficiency [Unknown]
  - Neutropenia [Recovered/Resolved]
  - Neutropenia [Recovered/Resolved]

NARRATIVE: CASE EVENT DATE: 20220405
